FAERS Safety Report 6929869-3 (Version None)
Quarter: 2010Q3

REPORT INFORMATION
  Report Type: 
  Country: None (occurrence: None)
  Receive Date: 20100818
  Receipt Date: 20100805
  Transmission Date: 20110219
  Serious: Yes (Other)
  Sender: FDA-Public Use
  Company Number: PHHY2010CA52040

PATIENT
  Sex: Female

DRUGS (1)
  1. SANDOSTATIN LAR [Suspect]
     Indication: OVARIAN CANCER
     Dosage: 20 MG, EVERY 4 WEEKS
     Route: 030
     Dates: start: 20100311

REACTIONS (1)
  - HEART RATE INCREASED [None]
